FAERS Safety Report 19379710 (Version 1)
Quarter: 2021Q2

REPORT INFORMATION
  Report Type: Spontaneous
  Country: US (occurrence: US)
  Receive Date: 20210607
  Receipt Date: 20210607
  Transmission Date: 20210717
  Serious: No
  Sender: FDA-Public Use
  Company Number: US-TEVA-2021-US-1914094

PATIENT
  Sex: Female

DRUGS (1)
  1. ADIPEX?P [Suspect]
     Active Substance: PHENTERMINE HYDROCHLORIDE
     Route: 048

REACTIONS (2)
  - Drug ineffective [Unknown]
  - Product formulation issue [Unknown]
